FAERS Safety Report 9117908 (Version 1)
Quarter: 2013Q1

REPORT INFORMATION
  Report Type: Spontaneous
  Country: PT (occurrence: PT)
  Receive Date: 20130208
  Receipt Date: 20130208
  Transmission Date: 20140127
  Serious: Yes (Other)
  Sender: FDA-Public Use
  Company Number: PT-ELI_LILLY_AND_COMPANY-PT201301010528

PATIENT
  Age: 0 Year
  Sex: 0

DRUGS (13)
  1. HUMULIN NPH [Suspect]
     Dosage: 4 U, EACH EVENING
     Route: 064
  2. HUMULIN NPH [Suspect]
     Dosage: UNK, UNKNOWN
  3. HUMULIN NPH [Suspect]
     Dosage: 20 U, EACH EVENING
     Dates: end: 20121024
  4. MAGNESIUM [Concomitant]
     Dosage: 1 DF, EACH MORNING
     Route: 064
  5. FOLIC ACID [Concomitant]
     Dosage: UNK, UNKNOWN
     Route: 064
  6. VITAMIN B-12 [Concomitant]
     Dosage: UNK, UNKNOWN
     Route: 064
  7. IODINE [Concomitant]
     Dosage: UNK, UNKNOWN
     Route: 064
  8. OMEGA 3 [Concomitant]
     Dosage: UNK, UNKNOWN
     Route: 064
  9. THIAMINE HYDROCHLORIDE [Concomitant]
     Dosage: 1 DF, EACH MORNING
  10. PYRIDOXINE HYDROCHLORIDE [Concomitant]
     Dosage: 1 DF, EACH MORNING
  11. CYANOCOBALAMIN [Concomitant]
     Dosage: 1 DF, EACH MORNING
  12. FERROUS SULFATE [Concomitant]
     Dosage: 1 DF, EACH EVENING
  13. METFORMIN [Concomitant]
     Dosage: 1000 MG, EACH MORNING

REACTIONS (2)
  - Premature baby [Unknown]
  - Foetal exposure during pregnancy [Recovered/Resolved]
